FAERS Safety Report 9771033 (Version 1)
Quarter: 2013Q4

REPORT INFORMATION
  Report Type: Report from Study
  Country: NL (occurrence: NL)
  Receive Date: 20131218
  Receipt Date: 20131218
  Transmission Date: 20140711
  Serious: Yes (Hospitalization)
  Sender: FDA-Public Use
  Company Number: NL-TEVA-449002ISR

PATIENT
  Age: 72 Year
  Sex: Male
  Weight: 78 kg

DRUGS (13)
  1. OXALIPLATIN [Suspect]
     Indication: COLORECTAL CANCER METASTATIC
     Route: 042
     Dates: start: 20130618, end: 20130618
  2. LEUCOVORIN CALCIUM [Suspect]
     Indication: COLORECTAL CANCER METASTATIC
     Route: 042
     Dates: start: 20130618, end: 20130618
  3. 5 FU [Suspect]
     Indication: COLORECTAL CANCER METASTATIC
     Route: 040
     Dates: start: 20130618, end: 20130618
  4. 5 FU [Suspect]
     Route: 040
     Dates: start: 20130618, end: 20130620
  5. TIVOZANIB CAPSULE [Suspect]
     Indication: COLORECTAL CANCER METASTATIC
     Route: 048
     Dates: start: 20130618, end: 20130624
  6. TIVOZANIB CAPSULE [Suspect]
     Route: 048
     Dates: start: 20130704
  7. ONDANSTERON [Concomitant]
     Dates: start: 20130322
  8. ROSUVASTATIN [Concomitant]
     Dates: start: 20010101
  9. AMLODIPINE [Concomitant]
     Dates: start: 20010101
  10. METFORMIN [Concomitant]
  11. GLIMEPIRIDE [Concomitant]
  12. OXAZEPAM [Concomitant]
  13. QUETIAPINE [Concomitant]

REACTIONS (2)
  - Colitis [Recovered/Resolved]
  - Ileus [Recovered/Resolved]
